FAERS Safety Report 14991359 (Version 1)
Quarter: 2018Q2

REPORT INFORMATION
  Report Type: Spontaneous
  Country: US (occurrence: US)
  Receive Date: 20180608
  Receipt Date: 20180608
  Transmission Date: 20180711
  Serious: No
  Sender: FDA-Public Use
  Company Number: US-GLAXOSMITHKLINE-US2018096449

PATIENT
  Age: 48 Year
  Sex: Female

DRUGS (1)
  1. FLONASE ALLERGY RELIEF [Suspect]
     Active Substance: FLUTICASONE PROPIONATE
     Indication: SINUSITIS
     Dosage: UNK
     Dates: start: 20170531, end: 20170630

REACTIONS (4)
  - Off label use [Unknown]
  - Nasal disorder [Not Recovered/Not Resolved]
  - Product use in unapproved indication [Unknown]
  - Nasal septum deviation [Unknown]
